FAERS Safety Report 24843006 (Version 2)
Quarter: 2025Q4

REPORT INFORMATION
  Report Type: Report from Study
  Country: CA (occurrence: CA)
  Receive Date: 20250115
  Receipt Date: 20251023
  Transmission Date: 20260117
  Serious: Yes (Hospitalization, Other)
  Sender: ABBVIE
  Company Number: CA-ABBVIE-6085076

PATIENT
  Age: 49 Year
  Sex: Female

DRUGS (1)
  1. RINVOQ [Suspect]
     Active Substance: UPADACITINIB
     Indication: Rheumatoid arthritis
     Dosage: DOSE FORM: EXTENDED RELEASE TABLET
     Route: 048
     Dates: start: 20200804

REACTIONS (8)
  - Stress cardiomyopathy [Unknown]
  - Acute myocardial infarction [Unknown]
  - Chest pain [Unknown]
  - Chest discomfort [Unknown]
  - Palpitations [Unknown]
  - Cyclic vomiting syndrome [Recovering/Resolving]
  - Blood glucose increased [Unknown]
  - Nausea [Recovering/Resolving]

NARRATIVE: CASE EVENT DATE: 20250101
